FAERS Safety Report 6434287-0 (Version None)
Quarter: 2009Q4

REPORT INFORMATION
  Report Type: 
  Country: None (occurrence: None)
  Receive Date: 20091110
  Receipt Date: 20091101
  Transmission Date: 20100525
  Serious: Yes (Hospitalization)
  Sender: FDA-Public Use
  Company Number: US-AMGEN-QUU372396

PATIENT
  Sex: Male

DRUGS (3)
  1. ENBREL [Suspect]
     Indication: JUVENILE ARTHRITIS
     Route: 058
     Dates: start: 20080601, end: 20091101
  2. ENBREL [Suspect]
     Route: 058
     Dates: start: 20091101
  3. METHOTREXATE [Concomitant]
     Route: 058
     Dates: start: 20080201

REACTIONS (4)
  - ARTHRALGIA [None]
  - DEFORMITY [None]
  - INJECTION SITE PAIN [None]
  - PAIN IN EXTREMITY [None]
